FAERS Safety Report 8552953-8 (Version None)
Quarter: 2012Q3

REPORT INFORMATION
  Report Type: 
  Country: None (occurrence: None)
  Receive Date: 20120731
  Receipt Date: 20120727
  Transmission Date: 20120928
  Serious: Yes (Disabling, Other)
  Sender: FDA-Public Use
  Company Number: PHHY2012LB050006

PATIENT
  Sex: Male

DRUGS (6)
  1. CYNT [Concomitant]
     Dosage: 1 DF, PER DAY
     Route: 048
     Dates: start: 20030101
  2. TENORETIC [Concomitant]
     Dosage: 0.5 DF, DAILY
     Route: 048
     Dates: start: 20030101
  3. RAMIPRIL [Concomitant]
     Dosage: 1 DF, PER DAY
     Dates: start: 20030101
  4. GLISPOR [Concomitant]
     Dosage: 1 DF, BID
     Dates: start: 20070101
  5. TASIGNA [Suspect]
     Indication: CHRONIC MYELOID LEUKAEMIA
     Dosage: 800 MG, PER DAY
     Route: 048
     Dates: start: 20101101, end: 20120401
  6. HYDREA [Concomitant]
     Dosage: 500 MG, 8 HR
     Route: 048
     Dates: start: 20120401

REACTIONS (1)
  - GANGRENE [None]
